FAERS Safety Report 8414541-3 (Version None)
Quarter: 2012Q2

REPORT INFORMATION
  Report Type: 
  Country: None (occurrence: None)
  Receive Date: 20120605
  Receipt Date: 20120530
  Transmission Date: 20120825
  Serious: Yes (Other)
  Sender: FDA-Public Use
  Company Number: GR-B.I. PHARMACEUTICALS,INC./RIDGEFIELD-2012-EU-02942GD

PATIENT
  Age: 70 Year
  Sex: Female

DRUGS (5)
  1. METFORMIN HCL [Suspect]
     Indication: DIABETES MELLITUS
     Dosage: 1000 MG
     Route: 048
  2. TELMISARTAN [Suspect]
     Indication: HYPERTENSION
     Dosage: 80 MG
     Route: 048
  3. PROPYLENE GLYCOL [Suspect]
     Indication: FOOD POISONING
     Dosage: 160 G
  4. LAXATIVES [Concomitant]
     Indication: FOOD POISONING
  5. SILIBININ [Concomitant]
     Indication: FOOD POISONING
     Dosage: BOLUS DOSE OF 5 MG/KG FOLLOWED BY A CONTINUOUS INFUSION OF 20 MG/KG/DAY
     Route: 042

REACTIONS (2)
  - METABOLIC ACIDOSIS [None]
  - HYPERGLYCAEMIA [None]
